FAERS Safety Report 18504520 (Version 2)
Quarter: 2020Q4

REPORT INFORMATION
  Report Type: Report from Study
  Country: BR (occurrence: BR)
  Receive Date: 20201114
  Receipt Date: 20201126
  Transmission Date: 20210114
  Serious: Yes (Other)
  Sender: FDA-Public Use
  Company Number: NVSC2020BR303257

PATIENT
  Age: 67 Year
  Sex: Female

DRUGS (3)
  1. MAXIDEX [Suspect]
     Active Substance: DEXAMETHASONE
     Indication: EYE DISORDER
     Dosage: UNK(WHEN THE EYE ITCHES)
     Route: 047
  2. MAXIDEX [Suspect]
     Active Substance: DEXAMETHASONE
     Indication: EYE DISORDER
     Dosage: UNK
     Route: 065
  3. MAXIDEX [Suspect]
     Active Substance: DEXAMETHASONE
     Dosage: UNK(WHEN THE EYE ITCHES)
     Route: 047
     Dates: start: 202011

REACTIONS (3)
  - Hypertension [Recovering/Resolving]
  - Hypotension [Recovering/Resolving]
  - Vision blurred [Recovering/Resolving]

NARRATIVE: CASE EVENT DATE: 202011
